FAERS Safety Report 4422258-5 (Version None)
Quarter: 2004Q3

REPORT INFORMATION
  Report Type: 
  Country: None (occurrence: None)
  Receive Date: 20040806
  Receipt Date: 20040719
  Transmission Date: 20050211
  Serious: Yes (Hospitalization)
  Sender: FDA-Public Use
  Company Number: USA040773125

PATIENT
  Sex: Female
  Weight: 86 kg

DRUGS (1)
  1. ZYPREXA [Suspect]
     Dosage: 20 MG DAY

REACTIONS (2)
  - DIABETIC KETOACIDOSIS [None]
  - RENAL FAILURE ACUTE [None]
